FAERS Safety Report 25158344 (Version 2)
Quarter: 2025Q2

REPORT INFORMATION
  Report Type: Report from Study
  Country: CN (occurrence: CN)
  Receive Date: 20250404
  Receipt Date: 20250409
  Transmission Date: 20250716
  Serious: Yes (Other)
  Sender: ALEXION PHARMACEUTICALS
  Company Number: CN-ASTRAZENECA-202503GLO027679CN

PATIENT
  Age: 9 Year

DRUGS (9)
  1. SELUMETINIB [Suspect]
     Active Substance: SELUMETINIB
     Dosage: 25 MILLIGRAM, QD
     Route: 065
  2. SELUMETINIB [Suspect]
     Active Substance: SELUMETINIB
     Dosage: 30 MILLIGRAM, QD
     Route: 065
  3. SELUMETINIB [Suspect]
     Active Substance: SELUMETINIB
     Dosage: 25 MILLIGRAM, QD
     Route: 065
  4. SELUMETINIB [Suspect]
     Active Substance: SELUMETINIB
     Dosage: 35 MILLIGRAM, QD
     Route: 065
  5. SELUMETINIB [Suspect]
     Active Substance: SELUMETINIB
     Dosage: 25 MILLIGRAM, QD
     Route: 065
  6. SELUMETINIB [Suspect]
     Active Substance: SELUMETINIB
     Dosage: 35 MILLIGRAM, QD
     Route: 065
  7. SELUMETINIB [Suspect]
     Active Substance: SELUMETINIB
     Dosage: 25 MILLIGRAM, QD
     Route: 065
  8. CETIRIZINE HYDROCHLORIDE [Concomitant]
     Active Substance: CETIRIZINE HYDROCHLORIDE
     Route: 065
  9. CEFACLOR [Concomitant]
     Active Substance: CEFACLOR
     Dosage: UNK, G, BID
     Route: 065

REACTIONS (1)
  - Liver injury [Not Recovered/Not Resolved]
